FAERS Safety Report 7808510-1 (Version None)
Quarter: 2011Q4

REPORT INFORMATION
  Report Type: 
  Country: None (occurrence: None)
  Receive Date: 20111012
  Receipt Date: 20111005
  Transmission Date: 20120403
  Serious: Yes (Hospitalization)
  Sender: FDA-Public Use
  Company Number: US-VERTEX PHARMACEUTICALS INC.-AE-2011-002054

PATIENT

DRUGS (3)
  1. RIBAVIRIN [Concomitant]
     Indication: HEPATITIS C
  2. PEGASYS [Concomitant]
     Indication: HEPATITIS C
  3. INCIVEK [Suspect]
     Indication: HEPATITIS C
     Dates: start: 20110101

REACTIONS (5)
  - RIB FRACTURE [None]
  - RHABDOMYOLYSIS [None]
  - RENAL FAILURE [None]
  - WRIST FRACTURE [None]
  - HAEMOGLOBIN DECREASED [None]
